FAERS Safety Report 23654908 (Version 3)
Quarter: 2024Q2

REPORT INFORMATION
  Report Type: Spontaneous
  Country: US (occurrence: US)
  Receive Date: 20240320
  Receipt Date: 20240528
  Transmission Date: 20240715
  Serious: Yes (Other)
  Sender: FDA-Public Use
  Company Number: US-BEH-2024169980

PATIENT
  Age: 71 Year
  Sex: Male

DRUGS (21)
  1. IDELVION [Suspect]
     Active Substance: COAGULATION FACTOR IX RECOMBINANT HUMAN
     Indication: Factor IX deficiency
     Dosage: 4800 INTERNATIONAL UNIT (EVERY 10 DAYS AND PRN)
     Route: 042
     Dates: start: 201911
  2. IDELVION [Suspect]
     Active Substance: COAGULATION FACTOR IX RECOMBINANT HUMAN
     Indication: Factor IX deficiency
     Dosage: 4800 INTERNATIONAL UNIT (EVERY 10 DAYS AND PRN)
     Route: 042
     Dates: start: 201911
  3. IDELVION [Suspect]
     Active Substance: COAGULATION FACTOR IX RECOMBINANT HUMAN
     Indication: Prophylaxis
     Dosage: 2 DF (PRN DOSES)
     Route: 042
     Dates: start: 20240304, end: 20240305
  4. IDELVION [Suspect]
     Active Substance: COAGULATION FACTOR IX RECOMBINANT HUMAN
     Indication: Prophylaxis
     Dosage: 2 DF (PRN DOSES)
     Route: 042
     Dates: start: 20240304, end: 20240305
  5. IDELVION [Suspect]
     Active Substance: COAGULATION FACTOR IX RECOMBINANT HUMAN
     Indication: Haemarthrosis
     Dosage: 1 DF (BEFORE CORTISONE INJECTION AS PRECAUTION)
     Route: 042
     Dates: start: 2024
  6. IDELVION [Suspect]
     Active Substance: COAGULATION FACTOR IX RECOMBINANT HUMAN
     Indication: Haemarthrosis
     Dosage: 1 DF (BEFORE CORTISONE INJECTION AS PRECAUTION)
     Route: 042
     Dates: start: 2024
  7. IDELVION [Suspect]
     Active Substance: COAGULATION FACTOR IX RECOMBINANT HUMAN
     Indication: Joint injury
     Dosage: 2 DF
     Route: 042
     Dates: start: 20240413
  8. IDELVION [Suspect]
     Active Substance: COAGULATION FACTOR IX RECOMBINANT HUMAN
     Indication: Joint injury
     Dosage: 2 DF
     Route: 042
     Dates: start: 20240413
  9. IDELVION [Suspect]
     Active Substance: COAGULATION FACTOR IX RECOMBINANT HUMAN
     Indication: Haemarthrosis
     Dosage: 2 DF (PRN DOSES)
     Route: 042
     Dates: start: 20240330
  10. IDELVION [Suspect]
     Active Substance: COAGULATION FACTOR IX RECOMBINANT HUMAN
     Indication: Haemarthrosis
     Dosage: 2 DF (PRN DOSES)
     Route: 042
     Dates: start: 20240330
  11. IDELVION [Suspect]
     Active Substance: COAGULATION FACTOR IX RECOMBINANT HUMAN
     Indication: Factor IX deficiency
     Dosage: 4800 INTERNATIONAL UNIT (EVERY 10 DAYS)
     Route: 042
     Dates: start: 201911
  12. IDELVION [Suspect]
     Active Substance: COAGULATION FACTOR IX RECOMBINANT HUMAN
     Indication: Factor IX deficiency
     Dosage: 4800 INTERNATIONAL UNIT (EVERY 10 DAYS)
     Route: 042
     Dates: start: 201911
  13. IDELVION [Suspect]
     Active Substance: COAGULATION FACTOR IX RECOMBINANT HUMAN
     Indication: Prophylaxis
     Dosage: 2 DF (PRN DOSES)
     Route: 042
     Dates: start: 20240304, end: 20240305
  14. IDELVION [Suspect]
     Active Substance: COAGULATION FACTOR IX RECOMBINANT HUMAN
     Indication: Prophylaxis
     Dosage: 2 DF (PRN DOSES)
     Route: 042
     Dates: start: 20240304, end: 20240305
  15. IDELVION [Suspect]
     Active Substance: COAGULATION FACTOR IX RECOMBINANT HUMAN
     Indication: Haemarthrosis
     Dosage: 1 DF (BEFORE CORTISONE INJECTION AS PRECAUTION)
     Route: 042
     Dates: start: 2024
  16. IDELVION [Suspect]
     Active Substance: COAGULATION FACTOR IX RECOMBINANT HUMAN
     Indication: Haemarthrosis
     Dosage: 1 DF (BEFORE CORTISONE INJECTION AS PRECAUTION)
     Route: 042
     Dates: start: 2024
  17. IDELVION [Suspect]
     Active Substance: COAGULATION FACTOR IX RECOMBINANT HUMAN
     Indication: Joint injury
     Dosage: 2 DF
     Route: 042
     Dates: start: 20240413
  18. IDELVION [Suspect]
     Active Substance: COAGULATION FACTOR IX RECOMBINANT HUMAN
     Indication: Joint injury
     Dosage: 2 DF
     Route: 042
     Dates: start: 20240413
  19. IDELVION [Suspect]
     Active Substance: COAGULATION FACTOR IX RECOMBINANT HUMAN
     Indication: Haemarthrosis
     Dosage: 2 DF (PRN DOSES)
     Route: 042
     Dates: start: 20240330
  20. IDELVION [Suspect]
     Active Substance: COAGULATION FACTOR IX RECOMBINANT HUMAN
     Indication: Haemarthrosis
     Dosage: 2 DF (PRN DOSES)
     Route: 042
     Dates: start: 20240330
  21. CORTISONE [Concomitant]
     Active Substance: CORTISONE
     Dosage: UNK
     Dates: start: 2024

REACTIONS (6)
  - Haemarthrosis [Unknown]
  - Haemarthrosis [Unknown]
  - Fall [Unknown]
  - Joint injury [Unknown]
  - Haemarthrosis [Unknown]
  - Haemarthrosis [Recovered/Resolved]

NARRATIVE: CASE EVENT DATE: 20240304
